APPROVED DRUG PRODUCT: TERAZOSIN HYDROCHLORIDE
Active Ingredient: TERAZOSIN HYDROCHLORIDE
Strength: EQ 10MG BASE
Dosage Form/Route: TABLET;ORAL
Application: A074446 | Product #004
Applicant: TEVA PHARMACEUTICALS USA INC
Approved: May 18, 2000 | RLD: No | RS: No | Type: DISCN